FAERS Safety Report 8328024-2 (Version None)
Quarter: 2012Q2

REPORT INFORMATION
  Report Type: 
  Country: None (occurrence: None)
  Receive Date: 20120502
  Receipt Date: 20120423
  Transmission Date: 20120825
  Serious: Yes (Other)
  Sender: FDA-Public Use
  Company Number: NO-VERTEX PHARMACEUTICALS INC.-000000000000000423

PATIENT
  Age: 46 Year
  Sex: Male

DRUGS (1)
  1. INCIVO (TELAPREVIR) [Suspect]
     Indication: HEPATITIS C
     Dosage: DOSAGE FORM: TABLET
     Route: 065
     Dates: start: 20120101

REACTIONS (2)
  - BLOOD CREATININE INCREASED [None]
  - RASH [None]
